FAERS Safety Report 13755837 (Version 1)
Quarter: 2017Q3

REPORT INFORMATION
  Report Type: Spontaneous
  Country: CH (occurrence: CH)
  Receive Date: 20170714
  Receipt Date: 20170714
  Transmission Date: 20171127
  Serious: Yes (Life-Threatening, Hospitalization)
  Sender: FDA-Public Use
  Company Number: PHHY2017CH102334

PATIENT
  Age: 15 Year
  Sex: Female
  Weight: 50 kg

DRUGS (7)
  1. FOLIC ACID. [Concomitant]
     Active Substance: FOLIC ACID
     Indication: THALASSAEMIA SICKLE CELL
     Dosage: 5 MG, UNK
     Route: 048
  2. MORPHINE [Concomitant]
     Active Substance: MORPHINE
     Indication: PRODUCT USED FOR UNKNOWN INDICATION
     Route: 041
     Dates: start: 20170622
  3. JADENU [Suspect]
     Active Substance: DEFERASIROX
     Indication: THALASSAEMIA SICKLE CELL
     Dosage: 360 MG, TID
     Route: 048
     Dates: start: 20170530, end: 20170606
  4. TEMESTA [Concomitant]
     Active Substance: LORAZEPAM
     Indication: PRODUCT USED FOR UNKNOWN INDICATION
     Route: 048
     Dates: start: 20170623, end: 20170625
  5. JADENU [Suspect]
     Active Substance: DEFERASIROX
     Dosage: 360 MG, QID
     Route: 048
     Dates: start: 20170607, end: 20170624
  6. LITALIR [Concomitant]
     Active Substance: HYDROXYUREA
     Indication: THALASSAEMIA SICKLE CELL
     Route: 048
     Dates: end: 20170625
  7. PERFALGAN [Concomitant]
     Active Substance: ACETAMINOPHEN
     Indication: PRODUCT USED FOR UNKNOWN INDICATION
     Route: 041
     Dates: start: 20170622, end: 20170625

REACTIONS (4)
  - Hepatitis [Recovering/Resolving]
  - Febrile convulsion [Recovered/Resolved]
  - Coma [Recovered/Resolved]
  - Acute kidney injury [Recovering/Resolving]

NARRATIVE: CASE EVENT DATE: 20170621
